FAERS Safety Report 23061768 (Version 1)
Quarter: 2023Q4

REPORT INFORMATION
  Report Type: Spontaneous
  Country: NL (occurrence: NL)
  Receive Date: 20231013
  Receipt Date: 20231013
  Transmission Date: 20240109
  Serious: Yes (Other)
  Sender: FDA-Public Use
  Company Number: NL-EMA-DD-20230922-7410135-102303

PATIENT
  Age: 77 Year
  Sex: Male

DRUGS (4)
  1. CIPROFLOXACIN [Interacting]
     Active Substance: CIPROFLOXACIN
     Indication: Product used for unknown indication
     Dosage: UNK UNK, FREQUENCY TEXT: UNKNOWN
     Route: 065
  2. LEVOTHYROXINE [Interacting]
     Active Substance: LEVOTHYROXINE
     Indication: Hypothyroidism
     Dosage: UNK UNK, QD, THYRAX DUOTAB, DURATION: 45 YEARS
  3. LEVOTHYROXINE [Interacting]
     Active Substance: LEVOTHYROXINE
     Dosage: .1 MILLIGRAM DAILY; 0.1 MG, QD
     Dates: start: 1969
  4. LEVOTHYROXINE [Interacting]
     Active Substance: LEVOTHYROXINE
     Dosage: .1 MILLIGRAM DAILY; 0.1 MG, QD (80 DAYS) BLISTER
     Dates: start: 20140311

REACTIONS (4)
  - Blood thyroid stimulating hormone abnormal [Recovered/Resolved]
  - Weight decreased [Unknown]
  - Blood thyroid stimulating hormone increased [Unknown]
  - Drug interaction [Unknown]

NARRATIVE: CASE EVENT DATE: 20140711
